FAERS Safety Report 6080041-1 (Version None)
Quarter: 2009Q1

REPORT INFORMATION
  Report Type: 
  Country: None (occurrence: None)
  Receive Date: 20090217
  Receipt Date: 20090212
  Transmission Date: 20090719
  Serious: Yes (Hospitalization)
  Sender: FDA-Public Use
  Company Number: CA-WYE-G03116509

PATIENT
  Age: 75 Year
  Sex: Female

DRUGS (2)
  1. EFFEXOR XR [Suspect]
     Route: 048
     Dates: start: 20090101
  2. ZYPREXA [Suspect]

REACTIONS (2)
  - FALL [None]
  - GAIT DISTURBANCE [None]
